FAERS Safety Report 9713406 (Version 1)
Quarter: 2013Q4

REPORT INFORMATION
  Report Type: Spontaneous
  Country: US (occurrence: None)
  Receive Date: 20131125
  Receipt Date: 20131125
  Transmission Date: 20140711
  Serious: No
  Sender: FDA-Public Use
  Company Number: None

PATIENT
  Age: 26 Year
  Sex: Female
  Weight: 49.9 kg

DRUGS (1)
  1. PROVERA [Suspect]
     Indication: CONTRACEPTION
     Dates: start: 20131115, end: 20131115

REACTIONS (4)
  - Urticaria [None]
  - Pruritus [None]
  - Nausea [None]
  - Abdominal pain [None]
